FAERS Safety Report 4278024-7 (Version None)
Quarter: 2004Q1

REPORT INFORMATION
  Report Type: 
  Country: None (occurrence: None)
  Receive Date: 20040121
  Receipt Date: 20040112
  Transmission Date: 20041129
  Serious: Yes (Hospitalization, Other)
  Sender: FDA-Public Use
  Company Number: 2003119971

PATIENT
  Age: 63 Year
  Sex: Male
  Weight: 72.5755 kg

DRUGS (4)
  1. LIPITOR [Suspect]
     Indication: BLOOD CHOLESTEROL INCREASED
     Dosage: 20 MG (DAILY), ORAL
     Route: 048
     Dates: start: 20030301
  2. ATENOLOL [Concomitant]
  3. RABEPRAZOLE SODIUM (RABEPRAZOLE SODIUM) [Concomitant]
  4. DILTIAZEM [Concomitant]

REACTIONS (1)
  - DYSGEUSIA [None]
